FAERS Safety Report 10052853 (Version 1)
Quarter: 2014Q2

REPORT INFORMATION
  Report Type: Spontaneous
  Country: US (occurrence: US)
  Receive Date: 20140402
  Receipt Date: 20140402
  Transmission Date: 20141212
  Serious: Yes (Hospitalization)
  Sender: FDA-Public Use
  Company Number: US-BAYER-2014-045651

PATIENT
  Age: 67 Year
  Sex: Male

DRUGS (1)
  1. ACETYLSALICYLIC ACID (} 100 MG) [Suspect]

REACTIONS (3)
  - Intestinal fistula [None]
  - Duodenal ulcer [None]
  - Gastric ulcer [None]
